FAERS Safety Report 21197795 (Version 6)
Quarter: 2023Q4

REPORT INFORMATION
  Report Type: Report from Study
  Country: FR (occurrence: FR)
  Receive Date: 20220810
  Receipt Date: 20231130
  Transmission Date: 20240109
  Serious: Yes (Hospitalization)
  Sender: FDA-Public Use
  Company Number: FR-GILEAD-2022-0592993

PATIENT
  Age: 72 Year
  Sex: Male
  Weight: 86 kg

DRUGS (20)
  1. BREXUCABTAGENE AUTOLEUCEL [Suspect]
     Active Substance: BREXUCABTAGENE AUTOLEUCEL
     Indication: Mantle cell lymphoma
     Dosage: ^69^
     Route: 042
     Dates: start: 20220801, end: 20220801
  2. FLUDARABINE [Suspect]
     Active Substance: FLUDARABINE PHOSPHATE
     Indication: Bone marrow conditioning regimen
     Dosage: ^60^, QD
     Route: 042
     Dates: start: 20220727, end: 20220729
  3. CYCLOPHOSPHAMIDE [Suspect]
     Active Substance: CYCLOPHOSPHAMIDE
     Indication: Bone marrow conditioning regimen
     Dosage: ^1000^, QD
     Route: 042
     Dates: start: 20220727, end: 20220729
  4. MESNA [Suspect]
     Active Substance: MESNA
     Indication: Prophylaxis
     Dosage: ^666^, QD
     Route: 042
     Dates: start: 20220727, end: 20220729
  5. DEXAMETHASONE [Concomitant]
     Active Substance: DEXAMETHASONE
     Dosage: 20,MG,DAILY
     Route: 048
     Dates: start: 20220719, end: 20220722
  6. DEXAMETHASONE [Concomitant]
     Active Substance: DEXAMETHASONE
     Dosage: 10,MG,DAILY
     Route: 048
     Dates: start: 20220805, end: 20220805
  7. DEXAMETHASONE [Concomitant]
     Active Substance: DEXAMETHASONE
     Dosage: 40,MG,DAILY
     Route: 048
     Dates: start: 20220806, end: 20220811
  8. ZOFENOPRIL [Concomitant]
     Active Substance: ZOFENOPRIL
     Dosage: UNK,MG,DAILY
     Route: 048
  9. BACTRIM [Concomitant]
     Active Substance: SULFAMETHOXAZOLE\TRIMETHOPRIM
     Dosage: UNK,MG,DAILY
     Route: 048
     Dates: start: 20220719
  10. VALACYCLOVIR HYDROCHLORIDE [Concomitant]
     Active Substance: VALACYCLOVIR HYDROCHLORIDE
     Dosage: DAILY
     Route: 048
     Dates: start: 20220719
  11. TRAMADOL [Concomitant]
     Active Substance: TRAMADOL\TRAMADOL HYDROCHLORIDE
     Dosage: UNK,MG,DAILY
     Route: 048
     Dates: start: 20220719, end: 20220812
  12. SOLUVIT [BIOTIN;CYANOCOBALAMIN;FOLIC ACID;NICOTINAMIDE;PANTOTHENATE SO [Concomitant]
     Dosage: 1,OTHER,DAILY
     Route: 048
     Dates: start: 20220731, end: 20220801
  13. SMECTA [Concomitant]
     Active Substance: MONTMORILLONITE
     Dosage: 3,G,ONCE
     Route: 048
     Dates: start: 20220731, end: 20220801
  14. VALACYCLOVIR HYDROCHLORIDE [Concomitant]
     Active Substance: VALACYCLOVIR HYDROCHLORIDE
     Dosage: 500,MG,TWICE DAILY
     Route: 048
     Dates: start: 20220731
  15. ALGINIC ACID\ALUMINUM HYDROXIDE\MAGNESIUM TRISILICATE\SODIUM BICARBONA [Concomitant]
     Active Substance: ALGINIC ACID\ALUMINUM HYDROXIDE\MAGNESIUM TRISILICATE\SODIUM BICARBONATE
     Dosage: 3,OTHER,DAILY
     Route: 048
     Dates: start: 20220731
  16. ESOMEPRAZOLE [Concomitant]
     Active Substance: ESOMEPRAZOLE
     Dosage: 40,MG,DAILY
     Route: 048
     Dates: start: 20220731
  17. MAGNESIUM [Concomitant]
     Active Substance: MAGNESIUM
     Dosage: 1,OTHER,CONTINUOUS
     Route: 042
     Dates: start: 20220731, end: 20220801
  18. RACECADOTRIL [Concomitant]
     Active Substance: RACECADOTRIL
     Dosage: 100,MG,DAILY
     Route: 048
     Dates: start: 20220731, end: 20220801
  19. DEXTROSE\POTASSIUM CHLORIDE\SODIUM CHLORIDE [Concomitant]
     Active Substance: DEXTROSE\POTASSIUM CHLORIDE\SODIUM CHLORIDE
     Dosage: UNK,MG,CONTINUOUS
     Route: 042
     Dates: start: 20220731, end: 20220801
  20. TRACUTIL [CHROMIC CHLORIDE;COPPER CHLORIDE DIHYDRATE;FERRIC CHLORIDE;M [Concomitant]
     Dosage: UNK,MG,CONTINUOUS
     Route: 042
     Dates: start: 20220731, end: 20220801

REACTIONS (2)
  - Febrile bone marrow aplasia [Recovered/Resolved]
  - Cytokine release syndrome [Recovered/Resolved]

NARRATIVE: CASE EVENT DATE: 20220804
